FAERS Safety Report 7944040-4 (Version None)
Quarter: 2011Q4

REPORT INFORMATION
  Report Type: 
  Country: None (occurrence: None)
  Receive Date: 20111128
  Receipt Date: 20111116
  Transmission Date: 20120403
  Serious: Yes (Hospitalization)
  Sender: FDA-Public Use
  Company Number: FR-ASTRAZENECA-2011SE70115

PATIENT
  Age: 46 Year
  Sex: Female

DRUGS (12)
  1. ASPIRIN [Concomitant]
  2. GLUCOPHAGE [Suspect]
     Route: 048
     Dates: start: 20110201, end: 20110901
  3. TOPIRAMATE [Concomitant]
  4. PREDNISOLONE [Concomitant]
  5. CRESTOR [Suspect]
     Route: 048
     Dates: start: 20110902, end: 20111011
  6. VICTOZA [Suspect]
     Route: 030
     Dates: start: 20110902, end: 20111011
  7. NEXIUM [Concomitant]
  8. IMURAN [Concomitant]
  9. MAG 2 [Concomitant]
  10. GLUCOPHAGE [Suspect]
     Route: 048
     Dates: start: 20110901, end: 20111011
  11. CALCIUM CARBONATE [Concomitant]
  12. URSOLVAN [Concomitant]

REACTIONS (2)
  - AUTOIMMUNE HEPATITIS [None]
  - CYTOLYTIC HEPATITIS [None]
